FAERS Safety Report 8326200-6 (Version None)
Quarter: 2012Q2

REPORT INFORMATION
  Report Type: 
  Country: None (occurrence: None)
  Receive Date: 20120501
  Receipt Date: 20100830
  Transmission Date: 20120825
  Serious: No
  Sender: FDA-Public Use
  Company Number: US-TEVA-2010003353

PATIENT
  Sex: Female
  Weight: 72.186 kg

DRUGS (5)
  1. NUVIGIL [Suspect]
     Indication: FATIGUE
     Dosage: 150 MILLIGRAM;
     Route: 048
     Dates: start: 20100510, end: 20100619
  2. FLUOXETINE [Concomitant]
  3. FLAXSEED OIL [Concomitant]
  4. DIPHTHERIA, TETANUS, PERTUSSIS BOOSTER [Concomitant]
  5. VITAMIN TAB [Concomitant]

REACTIONS (5)
  - RASH PRURITIC [None]
  - SLEEP DISORDER [None]
  - BLOOD PRESSURE INCREASED [None]
  - RASH PAPULAR [None]
  - RASH [None]
